FAERS Safety Report 22032108 (Version 1)
Quarter: 2023Q1

REPORT INFORMATION
  Report Type: Spontaneous
  Country: US (occurrence: US)
  Receive Date: 20230224
  Receipt Date: 20230224
  Transmission Date: 20230417
  Serious: No
  Sender: FDA-Public Use
  Company Number: US-JNJFOC-20230241737

PATIENT
  Age: 77 Year
  Sex: Male

DRUGS (14)
  1. EDURANT [Suspect]
     Active Substance: RILPIVIRINE HYDROCHLORIDE
     Indication: HIV infection
     Route: 048
     Dates: start: 201210, end: 20150820
  2. EDURANT [Suspect]
     Active Substance: RILPIVIRINE HYDROCHLORIDE
     Route: 048
     Dates: start: 20170310, end: 20170922
  3. EMTRICITABINE [Suspect]
     Active Substance: EMTRICITABINE
     Indication: HIV infection
     Dosage: 1 DOSAGE FORM QD
     Route: 048
     Dates: start: 20180401, end: 20190823
  4. TIVICAY [Concomitant]
     Active Substance: DOLUTEGRAVIR SODIUM
     Indication: Product used for unknown indication
     Route: 065
     Dates: start: 20170923, end: 20190823
  5. ASPIRIN [Concomitant]
     Active Substance: ASPIRIN
     Indication: Product used for unknown indication
     Route: 065
     Dates: start: 20170401
  6. ALINAMIN-F [FURSULTIAMINE HYDROCHLORIDE] [Concomitant]
  7. REBAMIPIDE [Concomitant]
     Active Substance: REBAMIPIDE
  8. LIVALO [Concomitant]
     Active Substance: PITAVASTATIN CALCIUM
  9. ICOSAPENT ETHYL [Concomitant]
     Active Substance: ICOSAPENT ETHYL
  10. TADALAFIL [Concomitant]
     Active Substance: TADALAFIL
  11. COSOPT [Concomitant]
     Active Substance: DORZOLAMIDE HYDROCHLORIDE\TIMOLOL MALEATE
  12. ALPHAGAN P [Concomitant]
     Active Substance: BRIMONIDINE TARTRATE
  13. XALATAN [Concomitant]
     Active Substance: LATANOPROST
  14. RIPASUDIL HYDROCHLORIDE DIHYDRATE [Concomitant]
     Active Substance: RIPASUDIL HYDROCHLORIDE DIHYDRATE

REACTIONS (1)
  - Tinea pedis [Recovered/Resolved]

NARRATIVE: CASE EVENT DATE: 20170616
